FAERS Safety Report 16142143 (Version 3)
Quarter: 2019Q4

REPORT INFORMATION
  Report Type: Spontaneous
  Country: US (occurrence: US)
  Receive Date: 20190401
  Receipt Date: 20191022
  Transmission Date: 20200122
  Serious: No
  Sender: FDA-Public Use
  Company Number: US-SA-2019SA084107

PATIENT
  Age: 54 Year
  Sex: Female
  Weight: 90 kg

DRUGS (23)
  1. DIPHENHYDRAMINE. [Concomitant]
     Active Substance: DIPHENHYDRAMINE
     Indication: ANAPHYLACTIC REACTION
     Dosage: 25 MG, PRN
     Route: 048
     Dates: start: 20190116
  2. DICLOFENAC [Concomitant]
     Active Substance: DICLOFENAC
     Dosage: 50 MG, TID
     Route: 048
     Dates: start: 20180903
  3. AMITRIPTYLINE [Concomitant]
     Active Substance: AMITRIPTYLINE
     Dosage: 25 MG, HS
     Route: 048
     Dates: start: 20180112
  4. HEPARIN [Concomitant]
     Active Substance: HEPARIN SODIUM
     Dosage: 100 UN/ML
     Route: 042
     Dates: start: 20190116
  5. DOCUSATE [Concomitant]
     Active Substance: DOCUSATE
     Dosage: 100 MG, PRN
     Route: 048
     Dates: start: 20180828
  6. LIPITOR [Concomitant]
     Active Substance: ATORVASTATIN CALCIUM
     Dosage: 40 MG, QD
     Route: 048
     Dates: start: 20180112
  7. NITROSTAT [Concomitant]
     Active Substance: NITROGLYCERIN
     Dosage: 0.4 MG, PRN
     Route: 060
     Dates: start: 20180112
  8. LEVOTHYROXINE. [Concomitant]
     Active Substance: LEVOTHYROXINE
     Dosage: 100 UG, QD
     Route: 048
     Dates: start: 20180112
  9. STERILE WATER [Concomitant]
     Active Substance: WATER
     Dosage: 1 EACH
     Route: 042
     Dates: start: 20190116
  10. SERTRALINE [Concomitant]
     Active Substance: SERTRALINE HYDROCHLORIDE
     Dosage: 100 MG, QD
     Route: 048
     Dates: start: 20180903
  11. DICYCLOMINE [DICYCLOVERINE] [Concomitant]
     Dosage: 10 MG; EVERY AM AND PM
     Route: 048
     Dates: start: 20180112
  12. LIDOCAINE. [Concomitant]
     Active Substance: LIDOCAINE
     Indication: PREMEDICATION
     Dosage: 2.5 %
     Route: 061
     Dates: start: 20190116
  13. PANTOPRAZOLE [Concomitant]
     Active Substance: PANTOPRAZOLE
     Dosage: 40 MG, QD
     Route: 048
     Dates: start: 20180903
  14. LORAZEPAM. [Concomitant]
     Active Substance: LORAZEPAM
     Dosage: 0.5 MG, QD
     Route: 048
     Dates: start: 20180112
  15. NORMAL SALINE [Concomitant]
     Active Substance: SODIUM CHLORIDE
     Dosage: 0.9 %
     Route: 042
     Dates: start: 20190116
  16. SODIUM CHLORIDE. [Concomitant]
     Active Substance: SODIUM CHLORIDE
     Dosage: 0.9 %, UNK
     Route: 042
     Dates: start: 20190116
  17. LOSARTAN. [Concomitant]
     Active Substance: LOSARTAN
     Dosage: 50 MG, QD
     Route: 048
     Dates: start: 20180828
  18. OMEGA 3 [FISH OIL] [Concomitant]
     Active Substance: FISH OIL
     Dosage: 1 DF, QD
     Dates: start: 20180112
  19. EPINEPHRINE. [Concomitant]
     Active Substance: EPINEPHRINE
     Indication: ANAPHYLACTIC REACTION
     Dosage: 0.3 MG, PRN
     Route: 030
     Dates: start: 20190116
  20. METOPROLOL. [Concomitant]
     Active Substance: METOPROLOL
     Dosage: 1 DOSE; EVERY AM AND PM
     Route: 048
     Dates: start: 20180112
  21. CYCLOBENZAPRINE. [Concomitant]
     Active Substance: CYCLOBENZAPRINE
     Dosage: 10 MG, BID
     Route: 048
     Dates: start: 20180112
  22. FABRAZYME [Suspect]
     Active Substance: AGALSIDASE BETA
     Indication: FABRY^S DISEASE
     Dosage: 1 MG/KG, QOW
     Route: 041
     Dates: start: 20180112
  23. COENZYME Q10 [Concomitant]
     Active Substance: UBIDECARENONE
     Dosage: 100 MG, QD
     Route: 048
     Dates: start: 20180112

REACTIONS (11)
  - Pain [Unknown]
  - Headache [Unknown]
  - Hypertension [Unknown]
  - Pain in jaw [Unknown]
  - Dizziness postural [Unknown]
  - Ear discomfort [Unknown]
  - Hypoaesthesia [Unknown]
  - Vertigo [Unknown]
  - Nausea [Unknown]
  - Chest discomfort [Unknown]
  - Fatigue [Unknown]

NARRATIVE: CASE EVENT DATE: 20190514
